FAERS Safety Report 9395960 (Version 1)
Quarter: 2013Q3

REPORT INFORMATION
  Report Type: Spontaneous
  Country: US (occurrence: US)
  Receive Date: 20130711
  Receipt Date: 20130711
  Transmission Date: 20140515
  Serious: No
  Sender: FDA-Public Use
  Company Number: US-PFIZER INC-2013201893

PATIENT
  Age: 37 Year
  Sex: Female
  Weight: 65.31 kg

DRUGS (1)
  1. LEVOTHYROXINE SODIUM [Suspect]
     Indication: THYROID DISORDER
     Dosage: UNK
     Dates: start: 201306

REACTIONS (3)
  - Heart rate increased [Unknown]
  - Tremor [Unknown]
  - Malaise [Unknown]
